FAERS Safety Report 6236916-3 (Version None)
Quarter: 2009Q2

REPORT INFORMATION
  Report Type: 
  Country: None (occurrence: None)
  Receive Date: 20090619
  Receipt Date: 20090615
  Transmission Date: 20091009
  Serious: Yes (Hospitalization, Other)
  Sender: FDA-Public Use
  Company Number: US-BAYER-200923600NA

PATIENT
  Age: 79 Year
  Sex: Male

DRUGS (7)
  1. DACARBAZINE [Suspect]
     Indication: MALIGNANT MELANOMA
     Dosage: CYCLICAL
     Route: 042
     Dates: start: 20090311, end: 20090422
  2. IPILIMUMAB [Suspect]
     Indication: MALIGNANT MELANOMA
     Dosage: CYCLICAL
     Route: 042
     Dates: start: 20090313, end: 20090422
  3. HYZAAR HCTZ [Concomitant]
     Dates: start: 19950101
  4. SPIRIVA [Concomitant]
     Dates: start: 20080701
  5. PEPCID AC [Concomitant]
     Dates: start: 20050101
  6. BENADRYL [Concomitant]
     Dates: start: 20090429
  7. TYLENOL (CAPLET) [Concomitant]
     Dates: start: 20090328

REACTIONS (3)
  - ABDOMINAL PAIN [None]
  - ALANINE AMINOTRANSFERASE INCREASED [None]
  - ASPARTATE AMINOTRANSFERASE INCREASED [None]
